FAERS Safety Report 5783105-2 (Version None)
Quarter: 2008Q2

REPORT INFORMATION
  Report Type: 
  Country: None (occurrence: None)
  Receive Date: 20080624
  Receipt Date: 20080617
  Transmission Date: 20081010
  Serious: Yes (Death, Other)
  Sender: FDA-Public Use
  Company Number: US-WYE-H04559308

PATIENT
  Sex: Female

DRUGS (16)
  1. PREMPRO [Suspect]
  2. CYCRIN [Suspect]
  3. NORETHINDRONE ACETATE [Suspect]
  4. OGEN [Suspect]
  5. ACTIVELLA [Suspect]
  6. PROVERA [Suspect]
  7. ESTINYL [Suspect]
  8. CENESTIN [Suspect]
  9. FEMHRT [Suspect]
  10. ESTRACE [Suspect]
  11. ESTRATEST [Suspect]
  12. PROMETRIUM [Suspect]
  13. ESTRADIOL [Suspect]
  14. ESTROGEN NOS [Suspect]
  15. MEDROXYPROGESTERONE ACETATE [Suspect]
  16. PREMARIN [Suspect]

REACTIONS (1)
  - BREAST CANCER FEMALE [None]
